FAERS Safety Report 8196898-4 (Version None)
Quarter: 2012Q1

REPORT INFORMATION
  Report Type: 
  Country: None (occurrence: None)
  Receive Date: 20120309
  Receipt Date: 20120306
  Transmission Date: 20120608
  Serious: No
  Sender: FDA-Public Use
  Company Number: US-PFIZER INC-2012060315

PATIENT
  Sex: Female
  Weight: 102 kg

DRUGS (10)
  1. LYRICA [Suspect]
     Indication: NEUROPATHY PERIPHERAL
     Dosage: 30 MG, DAILY
     Dates: start: 20110101
  2. OMEPRAZOLE [Concomitant]
     Indication: GASTROOESOPHAGEAL REFLUX DISEASE
     Dosage: 20 MG, DAILY
  3. LYRICA [Suspect]
     Dosage: 75 MG, DAILY
  4. LYRICA [Suspect]
     Dosage: 75 MG, 3X/DAY
     Dates: end: 20120201
  5. SYNTHROID [Concomitant]
     Indication: THYROID DISORDER
     Dosage: 100 UG, DAILY
  6. HYDROCODONE [Concomitant]
     Indication: PAIN
     Dosage: AS NEEDED
  7. GABAPENTIN [Suspect]
     Dosage: 300 MG, 3X/DAY
     Dates: start: 20120301, end: 20120305
  8. CYMBALTA [Suspect]
     Indication: NEUROPATHY PERIPHERAL
     Dosage: 30 MG, DAILY
     Dates: start: 20120201, end: 20120301
  9. GABAPENTIN [Suspect]
     Indication: NEUROPATHY PERIPHERAL
     Dosage: UNK
  10. BUPROPION [Concomitant]
     Indication: DEPRESSION
     Dosage: 75 MG, DAILY

REACTIONS (5)
  - VISION BLURRED [None]
  - NAUSEA [None]
  - DRUG INEFFECTIVE [None]
  - INFLUENZA LIKE ILLNESS [None]
  - PRURITUS [None]
